FAERS Safety Report 20294976 (Version 1)
Quarter: 2022Q1

REPORT INFORMATION
  Report Type: Other
  Country: None (occurrence: US)
  Receive Date: 20220104
  Receipt Date: 20220104
  Transmission Date: 20220423
  Serious: Yes (Hospitalization)
  Sender: FDA-Public Use
  Company Number: US-OrBion Pharmaceuticals Private Limited-2123622

PATIENT
  Age: 52 Year
  Sex: Female

DRUGS (1)
  1. LEVETIRACETAM [Suspect]
     Active Substance: LEVETIRACETAM
     Indication: Epilepsy
     Route: 042

REACTIONS (3)
  - Myoclonus [Recovered/Resolved]
  - Drug level above therapeutic [Recovered/Resolved]
  - Toxicity to various agents [Recovered/Resolved]
